FAERS Safety Report 15727523 (Version 1)
Quarter: 2018Q4

REPORT INFORMATION
  Report Type: Spontaneous
  Country: US (occurrence: US)
  Receive Date: 20181217
  Receipt Date: 20181217
  Transmission Date: 20190205
  Serious: No
  Sender: FDA-Public Use
  Company Number: US-009507513-1812USA004370

PATIENT
  Sex: Male

DRUGS (3)
  1. NUVIGIL [Concomitant]
     Active Substance: ARMODAFINIL
     Dosage: IN THE MORNING
     Dates: start: 20181204
  2. MELATONIN [Concomitant]
     Active Substance: MELATONIN
     Dosage: UNK
     Dates: start: 20181204
  3. BELSOMRA [Suspect]
     Active Substance: SUVOREXANT
     Indication: SLEEP DISORDER
     Dosage: AT NIGHT, BY MOUTH
     Route: 048
     Dates: start: 20181204

REACTIONS (1)
  - Drug ineffective [Unknown]

NARRATIVE: CASE EVENT DATE: 20181204
